FAERS Safety Report 8360311-4 (Version None)
Quarter: 2012Q2

REPORT INFORMATION
  Report Type: 
  Country: None (occurrence: None)
  Receive Date: 20120515
  Receipt Date: 20120507
  Transmission Date: 20120825
  Serious: Yes (Hospitalization, Other)
  Sender: FDA-Public Use
  Company Number: US-NOVOPROD-351049

PATIENT
  Age: 64 Year
  Sex: Female
  Weight: 107.94 kg

DRUGS (9)
  1. ASPIRIN [Concomitant]
     Indication: PRODUCT USED FOR UNKNOWN INDICATION
     Dosage: 81 MG, UNK
  2. VITAMINS                           /00067501/ [Concomitant]
     Indication: PRODUCT USED FOR UNKNOWN INDICATION
  3. VICTOZA [Suspect]
     Indication: TYPE 2 DIABETES MELLITUS
     Dosage: 1.2 MG
     Route: 058
     Dates: start: 20110701
  4. METFORMIN HCL [Concomitant]
     Indication: TYPE 2 DIABETES MELLITUS
     Dosage: 500 MG, BID
     Route: 048
  5. HYZAAR [Concomitant]
     Indication: HYPERTENSION
     Dosage: 100 MG/25 MG
  6. LABETALOL HCL [Concomitant]
     Indication: HYPERTENSION
     Dosage: 100 MG, BID
  7. EFFEXOR XR [Concomitant]
     Indication: DIABETIC NEUROPATHY
  8. LIPITOR [Concomitant]
     Indication: HYPERCHOLESTEROLAEMIA
     Dosage: UNK, AT BEDTIME
  9. CALCIUM [Concomitant]
     Indication: PRODUCT USED FOR UNKNOWN INDICATION

REACTIONS (3)
  - URINARY TRACT INFECTION [None]
  - SEPSIS [None]
  - NEPHROLITHIASIS [None]
